FAERS Safety Report 6415297-6 (Version None)
Quarter: 2009Q4

REPORT INFORMATION
  Report Type: 
  Country: None (occurrence: None)
  Receive Date: 20091027
  Receipt Date: 20091013
  Transmission Date: 20100525
  Serious: Yes (Other)
  Sender: FDA-Public Use
  Company Number: PHHY2009BE42850

PATIENT
  Age: 10 Year
  Sex: Female

DRUGS (2)
  1. EXJADE [Suspect]
     Indication: CONGENITAL APLASTIC ANAEMIA
     Route: 048
  2. VITAMINS [Concomitant]

REACTIONS (3)
  - APHTHOUS STOMATITIS [None]
  - MOUTH ULCERATION [None]
  - WHITE BLOOD CELL COUNT DECREASED [None]
